FAERS Safety Report 4859935-8 (Version None)
Quarter: 2005Q4

REPORT INFORMATION
  Report Type: 
  Country: None (occurrence: None)
  Receive Date: 20051219
  Receipt Date: 20051213
  Transmission Date: 20060501
  Serious: Yes (Life-Threatening, Hospitalization)
  Sender: FDA-Public Use
  Company Number: 2005AC01944

PATIENT
  Age: 15775 Day
  Sex: Male

DRUGS (2)
  1. SELOKEEN ZOC [Suspect]
     Route: 048
  2. ADALAT [Suspect]
     Route: 048
     Dates: start: 20030227

REACTIONS (3)
  - ABDOMINAL PAIN [None]
  - ABNORMAL BEHAVIOUR [None]
  - NAUSEA [None]
